FAERS Safety Report 12599854 (Version 1)
Quarter: 2016Q3

REPORT INFORMATION
  Report Type: Spontaneous
  Country: AR (occurrence: AR)
  Receive Date: 20160727
  Receipt Date: 20160727
  Transmission Date: 20161109
  Serious: Yes (Hospitalization)
  Sender: FDA-Public Use
  Company Number: AR-PFIZER INC-2016351709

PATIENT
  Age: 56 Year
  Sex: Male

DRUGS (1)
  1. INLYTA [Suspect]
     Active Substance: AXITINIB
     Indication: RENAL CANCER
     Dosage: 10 MG, 1X/DAY
     Dates: start: 20140614

REACTIONS (7)
  - Pain in extremity [Unknown]
  - Skin exfoliation [Unknown]
  - Abscess [Recovered/Resolved]
  - Impaired healing [Not Recovered/Not Resolved]
  - Musculoskeletal disorder [Unknown]
  - Gait disturbance [Unknown]
  - Pneumonia bacterial [Recovered/Resolved]

NARRATIVE: CASE EVENT DATE: 201508
